FAERS Safety Report 7428940-X (Version None)
Quarter: 2011Q2

REPORT INFORMATION
  Report Type: 
  Country: None (occurrence: None)
  Receive Date: 20110421
  Receipt Date: 20110411
  Transmission Date: 20111010
  Serious: Yes (Other)
  Sender: FDA-Public Use
  Company Number: FR-JNJFOC-20110406209

PATIENT

DRUGS (3)
  1. METHADONE [Concomitant]
     Indication: DRUG EXPOSURE DURING PREGNANCY
     Route: 064
  2. RISPERDAL [Suspect]
     Indication: DRUG EXPOSURE DURING PREGNANCY
     Route: 064
  3. ANTIDEPRESSANT [Concomitant]
     Indication: DRUG EXPOSURE DURING PREGNANCY
     Route: 064

REACTIONS (1)
  - VENTRICULAR ASYSTOLE [None]
